FAERS Safety Report 21847756 (Version 5)
Quarter: 2023Q1

REPORT INFORMATION
  Report Type: Spontaneous
  Country: US (occurrence: US)
  Receive Date: 20230111
  Receipt Date: 20230224
  Transmission Date: 20230417
  Serious: Yes (Other)
  Sender: FDA-Public Use
  Company Number: US-002147023-NVSC2023US003213

PATIENT

DRUGS (3)
  1. AMOXICILLIN\CLAVULANATE POTASSIUM [Suspect]
     Active Substance: AMOXICILLIN\CLAVULANATE POTASSIUM
     Indication: Ear infection
     Dosage: 875/125 MG, BID
     Route: 065
     Dates: start: 20190505
  2. CISATRACURIUM BESYLATE [Suspect]
     Active Substance: CISATRACURIUM BESYLATE
     Indication: Product used for unknown indication
     Dosage: 10 MG IN 1 ML (VIAL)
     Route: 065
  3. BUPRENORPHINE AND NALOXONE [Suspect]
     Active Substance: BUPRENORPHINE HYDROCHLORIDE\NALOXONE HYDROCHLORIDE
     Indication: Product used for unknown indication
     Dosage: 8/2 MG
     Route: 065

REACTIONS (7)
  - Deafness [Unknown]
  - Ear infection [Not Recovered/Not Resolved]
  - Poor quality product administered [Unknown]
  - Product packaging quantity issue [Unknown]
  - Suspected counterfeit product [Unknown]
  - Extra dose administered [Unknown]
  - Drug ineffective [Unknown]
